FAERS Safety Report 15473465 (Version 3)
Quarter: 2018Q4

REPORT INFORMATION
  Report Type: Spontaneous
  Country: KZ (occurrence: KZ)
  Receive Date: 20181008
  Receipt Date: 20181030
  Transmission Date: 20190205
  Serious: Yes (Life-Threatening, Hospitalization, Other)
  Sender: FDA-Public Use
  Company Number: KZ-SA-2018SA275120

PATIENT
  Age: 3 Year
  Sex: Female
  Weight: 7.6 kg

DRUGS (4)
  1. IMIGLUCERASE [Suspect]
     Active Substance: IMIGLUCERASE
     Dosage: 400 MG, Q15D
     Route: 041
     Dates: start: 20180907, end: 20180907
  2. IMIGLUCERASE [Suspect]
     Active Substance: IMIGLUCERASE
     Dosage: 400 MG, Q15D
     Route: 041
     Dates: start: 201807, end: 201808
  3. IMIGLUCERASE [Suspect]
     Active Substance: IMIGLUCERASE
     Indication: GAUCHER^S DISEASE TYPE III
     Dosage: 400 MG, Q15D
     Route: 041
     Dates: start: 201801, end: 201806
  4. IMIGLUCERASE [Suspect]
     Active Substance: IMIGLUCERASE
     Dosage: 400 MG; QOW
     Route: 041
     Dates: start: 20181015

REACTIONS (7)
  - Loss of consciousness [Unknown]
  - Bronchoscopy [Unknown]
  - Vomiting [Unknown]
  - Asphyxia [Unknown]
  - Coma [Not Recovered/Not Resolved]
  - Pneumonia aspiration [Unknown]
  - Seizure [Not Recovered/Not Resolved]

NARRATIVE: CASE EVENT DATE: 20180907
